FAERS Safety Report 19463428 (Version 1)
Quarter: 2021Q2

REPORT INFORMATION
  Report Type: Not Available
  Country: None (occurrence: None)
  Receive Date: 20210625
  Receipt Date: 20210625
  Transmission Date: 20210717
  Serious: No
  Sender: FDA-Public Use
  Company Number: US-AKORN-168143

PATIENT
  Age: 58 Year
  Sex: Female

DRUGS (1)
  1. ZIOPTAN [Suspect]
     Active Substance: TAFLUPROST

REACTIONS (1)
  - Drug ineffective [Recovered/Resolved]
